FAERS Safety Report 5043003-9 (Version None)
Quarter: 2006Q2

REPORT INFORMATION
  Report Type: 
  Country: None (occurrence: None)
  Receive Date: 20060628
  Receipt Date: 20060616
  Transmission Date: 20061013
  Serious: Yes (Hospitalization, Other)
  Sender: FDA-Public Use
  Company Number: 226456

PATIENT
  Sex: Female

DRUGS (5)
  1. XOLAIR [Suspect]
     Indication: ASTHMA
     Dosage: 150MG, SINGLE, SUBCUTANEOUS
     Route: 058
     Dates: start: 20060528
  2. FORMOTEROL FUMARATE(FORMOTEROL FUMARATE) [Suspect]
     Indication: ASTHMA
     Dosage: OTHER
     Route: 050
  3. PREDNISOLONE [Concomitant]
  4. SALBUTAMOL SPRAY (ALBUTEROL/ALBUTEROL SULFATE) [Concomitant]
  5. FLEBOCORTID (HYDROCORTISONE SODIUM SUCCINATE) [Concomitant]

REACTIONS (3)
  - ASTHMA [None]
  - CONDITION AGGRAVATED [None]
  - LARYNGEAL OEDEMA [None]
